FAERS Safety Report 22041726 (Version 2)
Quarter: 2023Q2

REPORT INFORMATION
  Report Type: Spontaneous
  Country: US (occurrence: US)
  Receive Date: 20230227
  Receipt Date: 20230607
  Transmission Date: 20230721
  Serious: No
  Sender: FDA-Public Use
  Company Number: US-SA-2023SA063748

PATIENT
  Age: 56 Year
  Sex: Female

DRUGS (2)
  1. OXALIPLATIN [Suspect]
     Active Substance: OXALIPLATIN
     Dosage: UNK
  2. LONSURF [Suspect]
     Active Substance: TIPIRACIL HYDROCHLORIDE\TRIFLURIDINE
     Indication: Colon cancer
     Dosage: 35 MG, BID
     Route: 048
     Dates: start: 20220914

REACTIONS (8)
  - Peripheral coldness [Unknown]
  - Feeling cold [Unknown]
  - Plicated tongue [Not Recovered/Not Resolved]
  - Alopecia [Unknown]
  - Hypoaesthesia [Unknown]
  - Nausea [Unknown]
  - Decreased appetite [Not Recovered/Not Resolved]
  - Incorrect dose administered [Unknown]

NARRATIVE: CASE EVENT DATE: 20220919
